FAERS Safety Report 6307392-7 (Version None)
Quarter: 2009Q3

REPORT INFORMATION
  Report Type: 
  Country: None (occurrence: None)
  Receive Date: 20090813
  Receipt Date: 20090805
  Transmission Date: 20100115
  Serious: Yes (Other)
  Sender: FDA-Public Use
  Company Number: AU-JNJFOC-20090801103

PATIENT

DRUGS (1)
  1. HALOPERIDOL [Suspect]
     Indication: AGITATION
     Dosage: OVER 20 HOURS
     Route: 042

REACTIONS (2)
  - ATRIAL FIBRILLATION [None]
  - ELECTROCARDIOGRAM QT PROLONGED [None]
